FAERS Safety Report 20550190 (Version 1)
Quarter: 2022Q1

REPORT INFORMATION
  Report Type: Spontaneous
  Country: US (occurrence: US)
  Receive Date: 20220304
  Receipt Date: 20220304
  Transmission Date: 20220423
  Serious: Yes (Other)
  Sender: FDA-Public Use
  Company Number: US-PURDUE-USA-2020-0154553

PATIENT
  Sex: Female

DRUGS (14)
  1. BUTRANS [Suspect]
     Active Substance: BUPRENORPHINE
     Indication: Product used for unknown indication
     Dosage: UNKNOWN
     Route: 062
  2. HYSINGLA ER [Suspect]
     Active Substance: HYDROCODONE BITARTRATE
     Indication: Pain
     Dosage: 20 MG, DAILY
     Route: 048
  3. OXYCODONE HYDROCHLORIDE [Suspect]
     Active Substance: OXYCODONE HYDROCHLORIDE
     Indication: Knee arthroplasty
     Dosage: UNKNOWN
     Route: 065
  4. OXYCODONE HYDROCHLORIDE [Suspect]
     Active Substance: OXYCODONE HYDROCHLORIDE
     Indication: Pain management
  5. HYDROCODONE BITARTRATE [Suspect]
     Active Substance: HYDROCODONE BITARTRATE
     Indication: Knee arthroplasty
     Dosage: UNKNOWN
     Route: 048
  6. ACETAMINOPHEN\OXYCODONE HYDROCHLORIDE [Suspect]
     Active Substance: ACETAMINOPHEN\OXYCODONE HYDROCHLORIDE
     Indication: Product used for unknown indication
     Dosage: UNKNOWN
     Route: 048
  7. HYDROCODONE BITARTRATE AND ACETAMINOPHEN [Suspect]
     Active Substance: ACETAMINOPHEN\HYDROCODONE BITARTRATE
     Indication: Knee arthroplasty
     Dosage: (10-325 MG)
     Route: 048
     Dates: end: 201712
  8. HYDROCODONE BITARTRATE AND ACETAMINOPHEN [Suspect]
     Active Substance: ACETAMINOPHEN\HYDROCODONE BITARTRATE
     Indication: Pain management
     Dosage: 7.5-325 MG
     Route: 048
  9. TRAMADOL [Suspect]
     Active Substance: TRAMADOL
     Indication: Knee arthroplasty
     Dosage: 50 MG, Q6H
     Route: 048
     Dates: end: 201712
  10. TRAMADOL [Suspect]
     Active Substance: TRAMADOL
     Indication: Pain management
  11. DILAUDID [Suspect]
     Active Substance: HYDROMORPHONE HYDROCHLORIDE
     Indication: Pain
     Dosage: 4 MG, UNK
     Route: 048
  12. NORCO [Suspect]
     Active Substance: ACETAMINOPHEN\HYDROCODONE BITARTRATE
     Indication: Pain
     Dosage: 10-325 MG, QID
     Route: 065
  13. NORCO [Suspect]
     Active Substance: ACETAMINOPHEN\HYDROCODONE BITARTRATE
     Dosage: 5-325 MG, Q8H PRN
     Route: 065
  14. ACETAMINOPHEN\OXYCODONE HYDROCHLORIDE\OXYCODONE TEREPHTHALATE [Suspect]
     Active Substance: ACETAMINOPHEN\OXYCODONE HYDROCHLORIDE\OXYCODONE TEREPHTHALATE
     Indication: Product used for unknown indication
     Dosage: UNKNOWN
     Route: 065

REACTIONS (4)
  - Drug dependence [Unknown]
  - Wrong technique in product usage process [Unknown]
  - Drug withdrawal syndrome [Unknown]
  - Feeling abnormal [Unknown]
